FAERS Safety Report 12376521 (Version 2)
Quarter: 2016Q3

REPORT INFORMATION
  Report Type: Spontaneous
  Country: US (occurrence: US)
  Receive Date: 20160517
  Receipt Date: 20160901
  Transmission Date: 20161109
  Serious: No
  Sender: FDA-Public Use
  Company Number: US-RELYPSA-RLY2016000063

PATIENT
  Age: 64 Year
  Sex: Male

DRUGS (17)
  1. SODIUM BICARBONATE. [Concomitant]
     Active Substance: SODIUM BICARBONATE
  2. HYDROCODONE / IBUPROFEN [Concomitant]
     Active Substance: HYDROCODONE BITARTRATE\IBUPROFEN
  3. PHOSLO [Concomitant]
     Active Substance: CALCIUM ACETATE
  4. COLCRYS [Concomitant]
     Active Substance: COLCHICINE
  5. CARDIZEM LA [Concomitant]
     Active Substance: DILTIAZEM HYDROCHLORIDE
  6. HYDRALAZINE HCL [Concomitant]
     Active Substance: HYDRALAZINE HYDROCHLORIDE
  7. PRAVASTATIN SODIUM. [Concomitant]
     Active Substance: PRAVASTATIN SODIUM
  8. PAROXETINE HCL [Concomitant]
     Active Substance: PAROXETINE HYDROCHLORIDE
  9. NEXIUM [Concomitant]
     Active Substance: ESOMEPRAZOLE MAGNESIUM
  10. CALCITRIOL. [Concomitant]
     Active Substance: CALCITRIOL
  11. BUPROBAN [Concomitant]
     Active Substance: BUPROPION HYDROCHLORIDE
  12. REMICADE [Concomitant]
     Active Substance: INFLIXIMAB
  13. VITAMIN D                          /00107901/ [Concomitant]
     Active Substance: ERGOCALCIFEROL
     Dosage: 1000 MG, UNK
  14. CARISOPRODOL. [Concomitant]
     Active Substance: CARISOPRODOL
  15. LASIX [Concomitant]
     Active Substance: FUROSEMIDE
  16. VELTASSA [Suspect]
     Active Substance: PATIROMER
     Indication: HYPERKALAEMIA
     Dosage: 8.4 G, QD
     Route: 048
     Dates: start: 20160212
  17. ONGLYZA [Concomitant]
     Active Substance: SAXAGLIPTIN HYDROCHLORIDE

REACTIONS (2)
  - Constipation [Unknown]
  - Tooth infection [Unknown]

NARRATIVE: CASE EVENT DATE: 201602
